FAERS Safety Report 14484216 (Version 2)
Quarter: 2018Q1

REPORT INFORMATION
  Report Type: Report from Study
  Country: US (occurrence: US)
  Receive Date: 20180205
  Receipt Date: 20180213
  Transmission Date: 20180509
  Serious: Yes (Death, Other)
  Sender: FDA-Public Use
  Company Number: US-ROCHE-2065450

PATIENT

DRUGS (2)
  1. RITUXIMAB. [Suspect]
     Active Substance: RITUXIMAB
     Indication: CHRONIC LYMPHOCYTIC LEUKAEMIA
     Dosage: WEEKLY DURING THE FIRST 4 WEEKS [CYCLE 1], THEN MONTHLY FOR CYCLES 2-6)
     Route: 042
  2. IBRUTINIB [Suspect]
     Active Substance: IBRUTINIB
     Indication: CHRONIC LYMPHOCYTIC LEUKAEMIA
     Route: 048

REACTIONS (9)
  - Atrial fibrillation [Unknown]
  - Liposarcoma [Unknown]
  - Sarcoma [Unknown]
  - Neutropenia [Unknown]
  - Chronic myeloid leukaemia [Unknown]
  - Pneumonia [Fatal]
  - Hypertension [Unknown]
  - Colorectal cancer [Unknown]
  - Malignant melanoma [Unknown]
